FAERS Safety Report 19148289 (Version 1)
Quarter: 2021Q2

REPORT INFORMATION
  Report Type: Spontaneous
  Country: US (occurrence: US)
  Receive Date: 20210417
  Receipt Date: 20210417
  Transmission Date: 20210717
  Serious: No
  Sender: FDA-Public Use
  Company Number: US-TARO-2020TAR01040

PATIENT

DRUGS (2)
  1. OXICONAZOLE NITRATE CREAM 1% [Suspect]
     Active Substance: OXICONAZOLE NITRATE
     Indication: SEBORRHOEIC DERMATITIS
     Dosage: UNK, 4X/WEEK
     Route: 061
  2. METRONIDAZOLE. [Concomitant]
     Active Substance: METRONIDAZOLE
     Indication: PRODUCT USED FOR UNKNOWN INDICATION
     Dosage: UNK
     Route: 065

REACTIONS (3)
  - Burning sensation [Recovered/Resolved]
  - Facial pain [Recovered/Resolved]
  - Off label use [Unknown]
